FAERS Safety Report 5365627-1 (Version None)
Quarter: 2007Q2

REPORT INFORMATION
  Report Type: 
  Country: None (occurrence: None)
  Receive Date: 20070621
  Receipt Date: 20070612
  Transmission Date: 20071010
  Serious: Yes (Hospitalization)
  Sender: FDA-Public Use
  Company Number: DE-JNJFOC-20061103248

PATIENT
  Sex: Female
  Weight: 40 kg

DRUGS (9)
  1. REMINYL [Suspect]
     Indication: DEMENTIA
     Route: 048
  2. EUNERPAN [Suspect]
     Dosage: 5-0-5-10 ML
     Route: 048
  3. EUNERPAN [Suspect]
     Indication: AGITATION
     Route: 048
  4. VALORON N RETARD [Concomitant]
     Indication: OSTEOPOROSIS
  5. NOVAMINSULFON [Concomitant]
     Indication: PAIN
     Route: 048
  6. SIMVASTATIN [Concomitant]
     Route: 048
  7. PANTOPRAZOL [Concomitant]
     Route: 048
  8. RISEDRONIC ACID [Concomitant]
     Route: 048
  9. HYDROCHLOROTHIAZIDE [Concomitant]
     Route: 048

REACTIONS (1)
  - CIRCULATORY COLLAPSE [None]
